FAERS Safety Report 8665460 (Version 4)
Quarter: 2013Q3

REPORT INFORMATION
  Report Type: Report from Study
  Country: FR (occurrence: FR)
  Receive Date: 20120716
  Receipt Date: 20130925
  Transmission Date: 20140515
  Serious: Yes (Other)
  Sender: FDA-Public Use
  Company Number: FR-MPIJNJ-2012-04729

PATIENT
  Sex: 0

DRUGS (8)
  1. VELCADE [Suspect]
     Indication: PLASMA CELL MYELOMA
     Dosage: 2.3 MG, UNK
     Dates: start: 20120220, end: 20120629
  2. REVLIMID [Suspect]
     Indication: PLASMA CELL MYELOMA
     Dosage: 25 MG, UNK
     Dates: start: 20120220, end: 20120629
  3. DEXAMETHASONE [Suspect]
     Indication: PLASMA CELL MYELOMA
     Dosage: 10 MG, UNK
     Dates: start: 20120220, end: 20120629
  4. ZELITREX                           /01269701/ [Concomitant]
     Indication: PROPHYLAXIS
     Dosage: 500 MG, UNK
     Route: 048
     Dates: start: 20120220
  5. BACTRIM [Concomitant]
     Indication: PROPHYLAXIS
     Dosage: 800 MG, UNK
     Route: 048
     Dates: start: 20120220
  6. AMOXICILLINE                       /00249602/ [Concomitant]
     Indication: PROPHYLAXIS
     Dosage: 500 MG, UNK
     Route: 048
     Dates: start: 20120220
  7. LEDERFOLIN                         /00566702/ [Concomitant]
     Indication: PROPHYLAXIS
     Dosage: 25 MG, UNK
     Dates: start: 20120220
  8. INNOHEP                            /00889602/ [Concomitant]
     Indication: PROPHYLAXIS
     Dosage: 0.35 ML, UNK
     Route: 058
     Dates: start: 20120220

REACTIONS (1)
  - Thrombosis [Recovered/Resolved with Sequelae]
